FAERS Safety Report 16887006 (Version 1)
Quarter: 2019Q4

REPORT INFORMATION
  Report Type: Spontaneous
  Country: US (occurrence: US)
  Receive Date: 20191004
  Receipt Date: 20191004
  Transmission Date: 20200122
  Serious: Yes (Other)
  Sender: FDA-Public Use
  Company Number: US-ASTRAZENECA-2019SF38374

PATIENT
  Age: 58 Year
  Sex: Female
  Weight: 97.1 kg

DRUGS (4)
  1. METFORMIN [Concomitant]
     Active Substance: METFORMIN HYDROCHLORIDE
     Indication: DIABETES MELLITUS
     Route: 048
     Dates: start: 2009
  2. ATENOLOL. [Suspect]
     Active Substance: ATENOLOL
     Indication: BLOOD PRESSURE MEASUREMENT
     Route: 048
  3. LYNPARZA [Suspect]
     Active Substance: OLAPARIB
     Indication: OVARIAN CANCER
     Route: 048
  4. AMLODIPINE [Concomitant]
     Active Substance: AMLODIPINE BESYLATE
     Indication: HYPERTENSION
     Route: 048

REACTIONS (5)
  - Fatigue [Not Recovered/Not Resolved]
  - Product dose omission [Not Recovered/Not Resolved]
  - Peripheral swelling [Recovered/Resolved]
  - Ovarian cancer recurrent [Unknown]
  - Asthenia [Not Recovered/Not Resolved]

NARRATIVE: CASE EVENT DATE: 2017
